FAERS Safety Report 8790737 (Version 2)
Quarter: 2014Q2

REPORT INFORMATION
  Report Type: Spontaneous
  Country: US (occurrence: None)
  Receive Date: 20120906
  Receipt Date: 20140624
  Transmission Date: 20141212
  Serious: Yes (Other)
  Sender: FDA-Public Use
  Company Number: 1390454

PATIENT
  Age: 16 Year
  Sex: Male

DRUGS (2)
  1. LACTATED RINGER^S INJECTION, USP, IN FLEX, PLASTIC CONTAINER (LACTATED RINGERS) [Suspect]
     Indication: MEDICATION DILUTION
     Route: 041
     Dates: start: 20120820, end: 20120820
  2. ASCORBIC ACID [Suspect]
     Indication: PRODUCT USED FOR UNKNOWN INDICATION
     Dates: start: 20120820, end: 20120820

REACTIONS (4)
  - Chills [None]
  - Tremor [None]
  - Expired product administered [None]
  - Pyrexia [None]
